FAERS Safety Report 9501753 (Version 1)
Quarter: 2013Q3

REPORT INFORMATION
  Report Type: Spontaneous
  Country: FR (occurrence: FR)
  Receive Date: 20130905
  Receipt Date: 20130905
  Transmission Date: 20140515
  Serious: Yes (Other)
  Sender: FDA-Public Use
  Company Number: FR-ELI_LILLY_AND_COMPANY-FR201308009006

PATIENT
  Sex: Male

DRUGS (2)
  1. HUMALOG LISPRO [Suspect]
     Dosage: 26 IU, SINGLE
     Route: 058
  2. HUMALOG 25% LISPRO, 75% NPL [Suspect]
     Dosage: 26 IU, UNK

REACTIONS (1)
  - Wrong drug administered [Recovered/Resolved]
